FAERS Safety Report 4287207-1 (Version None)
Quarter: 2004Q1

REPORT INFORMATION
  Report Type: 
  Country: None (occurrence: None)
  Receive Date: 20040126
  Receipt Date: 20031017
  Transmission Date: 20041129
  Serious: No
  Sender: FDA-Public Use
  Company Number: USA031049155

PATIENT
  Age: 64 Year
  Sex: Male
  Weight: 93 kg

DRUGS (9)
  1. FORTEO [Suspect]
     Indication: OSTEOPOROSIS
     Dosage: 20 UG/DAY
     Dates: start: 20030520
  2. LEXAPRO [Concomitant]
  3. BEXTRA [Concomitant]
  4. SINEMET [Concomitant]
  5. XANAX [Concomitant]
  6. TRAZODONE HCL [Concomitant]
  7. ACTONEL [Concomitant]
  8. CELEXA [Concomitant]
  9. PREVACID [Concomitant]

REACTIONS (6)
  - ASTHENIA [None]
  - DIZZINESS [None]
  - ILL-DEFINED DISORDER [None]
  - MOTION SICKNESS [None]
  - MUSCLE CRAMP [None]
  - VERTIGO [None]
